FAERS Safety Report 25957330 (Version 1)
Quarter: 2025Q4

REPORT INFORMATION
  Report Type: Spontaneous
  Country: US (occurrence: US)
  Receive Date: 20251024
  Receipt Date: 20251024
  Transmission Date: 20260117
  Serious: No
  Sender: SEPTODONT
  Company Number: US-SEPTODONT-2024019208

PATIENT
  Age: 3 Decade
  Sex: Female

DRUGS (3)
  1. SEPTOCAINE [Suspect]
     Active Substance: ARTICAINE HYDROCHLORIDE\EPINEPHRINE BITARTRATE
     Indication: Dental local anaesthesia
     Dosage: UPTO 3 CARTRIDGES.
     Route: 004
     Dates: start: 202411, end: 202411
  2. 27Ga Long Needle [Concomitant]
  3. 30Ga Short Needle [Concomitant]

REACTIONS (1)
  - Drug ineffective [Unknown]

NARRATIVE: CASE EVENT DATE: 20241101
